FAERS Safety Report 11536339 (Version 2)
Quarter: 2015Q3

REPORT INFORMATION
  Report Type: Spontaneous
  Country: US (occurrence: US)
  Receive Date: 20150922
  Receipt Date: 20150929
  Transmission Date: 20151125
  Serious: Yes (Hospitalization)
  Sender: FDA-Public Use
  Company Number: US-BRAINTREE LABORATORIES-150370

PATIENT
  Age: 64 Year
  Sex: Female
  Weight: 49.9 kg

DRUGS (1)
  1. SUPREP BOWEL PREP [Suspect]
     Active Substance: MAGNESIUM SULFATE\POTASSIUM SULFATE\SODIUM SULFATE
     Indication: COLONOSCOPY
     Dosage: 2 X 6 OZ. BOTTLE
     Route: 048
     Dates: start: 20150816, end: 20150817

REACTIONS (13)
  - Hypoacusis [None]
  - Kidney infection [None]
  - Transient ischaemic attack [None]
  - Weight decreased [None]
  - Abdominal discomfort [None]
  - Abdominal pain upper [None]
  - Vomiting [None]
  - Muscular weakness [None]
  - Cholecystitis infective [None]
  - Dizziness [None]
  - Back pain [None]
  - Balance disorder [None]
  - Pain in extremity [None]

NARRATIVE: CASE EVENT DATE: 20150816
